FAERS Safety Report 8494892-7 (Version None)
Quarter: 2012Q3

REPORT INFORMATION
  Report Type: 
  Country: None (occurrence: None)
  Receive Date: 20120709
  Receipt Date: 20120629
  Transmission Date: 20120928
  Serious: Yes (Life-Threatening, Hospitalization)
  Sender: FDA-Public Use
  Company Number: GB-ASTELLAS-2012US005631

PATIENT
  Sex: Male
  Weight: 71 kg

DRUGS (12)
  1. OXYCODONE HCL [Concomitant]
     Indication: PRODUCT USED FOR UNKNOWN INDICATION
     Dosage: 140 MG, UNKNOWN/D
     Route: 065
     Dates: start: 20120401
  2. DEXAMETHASONE [Concomitant]
     Indication: INTERSTITIAL LUNG DISEASE
     Dosage: UNK
     Route: 048
     Dates: start: 20120617, end: 20120624
  3. ERLOTINIB HYDROCHLORIDE [Suspect]
     Indication: LUNG NEOPLASM MALIGNANT
     Dosage: 150 MG, UID/QD
     Route: 048
     Dates: start: 20120615, end: 20120617
  4. DOMPERIDONE [Concomitant]
     Indication: PRODUCT USED FOR UNKNOWN INDICATION
     Dosage: 40 MG, UNKNOWN/D
     Route: 065
     Dates: start: 20120401
  5. GABAPENTIN [Concomitant]
     Indication: NEURALGIA
     Dosage: 900 MG, UNKNOWN/D
     Route: 065
     Dates: start: 20120401
  6. CO-AMOXICLAV                       /00756801/ [Concomitant]
     Indication: INTERSTITIAL LUNG DISEASE
     Dosage: UNK
     Route: 042
     Dates: start: 20120617, end: 20120624
  7. SENNA                              /00142201/ [Concomitant]
     Indication: PRODUCT USED FOR UNKNOWN INDICATION
     Dosage: 30 MG, UNKNOWN/D
     Route: 065
     Dates: start: 20120401
  8. CLARITHROMYCIN [Concomitant]
     Indication: INTERSTITIAL LUNG DISEASE
     Dosage: UNK
     Route: 042
     Dates: start: 20120617, end: 20120624
  9. DOCUSATE SODIUM [Concomitant]
     Indication: PRODUCT USED FOR UNKNOWN INDICATION
     Dosage: 400 MG, UNKNOWN/D
     Route: 065
     Dates: start: 20120401
  10. DIAZEPAM [Concomitant]
     Indication: PRODUCT USED FOR UNKNOWN INDICATION
     Dosage: 5 MG, UNKNOWN/D
     Route: 065
     Dates: start: 20120401
  11. OMEPRAZOLE [Concomitant]
     Indication: PRODUCT USED FOR UNKNOWN INDICATION
     Dosage: 40 MG, UNKNOWN/D
     Route: 048
     Dates: start: 20120401
  12. FOLIC ACID [Concomitant]
     Indication: MEDICAL DIET
     Dosage: 5 MG, UNKNOWN/D
     Route: 065
     Dates: start: 20120401

REACTIONS (1)
  - INTERSTITIAL LUNG DISEASE [None]
